APPROVED DRUG PRODUCT: BICALUTAMIDE
Active Ingredient: BICALUTAMIDE
Strength: 50MG
Dosage Form/Route: TABLET;ORAL
Application: A079045 | Product #001
Applicant: FRESENIUS KABI USA LLC
Approved: May 13, 2010 | RLD: No | RS: No | Type: DISCN